FAERS Safety Report 14029430 (Version 1)
Quarter: 2017Q4

REPORT INFORMATION
  Report Type: Spontaneous
  Country: US (occurrence: US)
  Receive Date: 20171002
  Receipt Date: 20171002
  Transmission Date: 20180321
  Serious: Yes (Other)
  Sender: FDA-Public Use
  Company Number: None

PATIENT
  Age: 71 Year
  Sex: Female
  Weight: 52.2 kg

DRUGS (15)
  1. ATORVASTATIN ORAL 10 MG [Suspect]
     Active Substance: ATORVASTATIN
     Indication: BLOOD CHOLESTEROL DECREASED
     Dosage: ?          QUANTITY:1 TABLET(S);?
     Route: 048
     Dates: start: 20170808, end: 20170920
  2. FLONASE [Concomitant]
     Active Substance: FLUTICASONE PROPIONATE
  3. ZADIDOR [Concomitant]
  4. ATORVASTATIN ORAL 10 MG [Suspect]
     Active Substance: ATORVASTATIN
     Indication: LOW DENSITY LIPOPROTEIN
     Dosage: ?          QUANTITY:1 TABLET(S);?
     Route: 048
     Dates: start: 20170808, end: 20170920
  5. VALACYCLOVIR [Concomitant]
     Active Substance: VALACYCLOVIR HYDROCHLORIDE
  6. VITAMIN D [Concomitant]
     Active Substance: CHOLECALCIFEROL
  7. PULMICORT FLEXHALER [Concomitant]
     Active Substance: BUDESONIDE
  8. ESTRACE [Concomitant]
     Active Substance: ESTRADIOL
  9. Q10 [Concomitant]
  10. VENTOLIN [Concomitant]
     Active Substance: ALBUTEROL SULFATE
  11. VITAMIN C [Concomitant]
     Active Substance: ASCORBIC ACID
  12. FISH OIL [Concomitant]
     Active Substance: FISH OIL
  13. IBUPROFEN. [Concomitant]
     Active Substance: IBUPROFEN
  14. NATROL MY FAVORITE MULTIPLE WITHOUT IRON [Concomitant]
  15. TURMERIC [Concomitant]
     Active Substance: HERBALS\TURMERIC

REACTIONS (10)
  - Lethargy [None]
  - Apathy [None]
  - Abdominal distension [None]
  - Pollakiuria [None]
  - Crying [None]
  - Gastrooesophageal reflux disease [None]
  - Dark circles under eyes [None]
  - Depressed mood [None]
  - Psychiatric symptom [None]
  - Fatigue [None]

NARRATIVE: CASE EVENT DATE: 20170831
